FAERS Safety Report 9168937 (Version 2)
Quarter: 2013Q2

REPORT INFORMATION
  Report Type: Spontaneous
  Country: CA (occurrence: CA)
  Receive Date: 20130318
  Receipt Date: 20130502
  Transmission Date: 20140414
  Serious: Yes (Death, Other)
  Sender: FDA-Public Use
  Company Number: CA-BAYER-2013-031314

PATIENT
  Age: 93 Year
  Sex: Male

DRUGS (2)
  1. AVELOX [Suspect]
     Dosage: UNK
     Route: 048
  2. MACROBID [Suspect]
     Dosage: UNK
     Route: 065

REACTIONS (6)
  - Coma [Fatal]
  - VIIth nerve paralysis [None]
  - Hallucination [None]
  - Confusional state [None]
  - Dysarthria [None]
  - Fall [None]
